FAERS Safety Report 8366230-1 (Version None)
Quarter: 2012Q2

REPORT INFORMATION
  Report Type: 
  Country: None (occurrence: None)
  Receive Date: 20120517
  Receipt Date: 20120511
  Transmission Date: 20120825
  Serious: Yes (Other)
  Sender: FDA-Public Use
  Company Number: PHHY2010CA64373

PATIENT
  Sex: Female
  Weight: 77.2 kg

DRUGS (7)
  1. ZOLEDRONOC ACID [Suspect]
     Indication: OSTEOPOROSIS
     Dosage: UNK UKN, UNK
     Route: 042
     Dates: start: 20091209
  2. FORTEO [Concomitant]
     Dosage: 20 MG,DAILY
  3. VITAMIN D [Concomitant]
     Dosage: 200 IU, UNK
     Route: 048
     Dates: start: 20090829
  4. EVISTA [Concomitant]
     Dosage: 670 MG, DAILY
  5. DIDROCAL [Concomitant]
     Dosage: 400 MG, DAILY
     Dates: start: 20020101, end: 20040726
  6. CALCIUM CARBONATE [Concomitant]
     Dosage: 1000 MG, UNK
     Route: 048
     Dates: start: 20090824
  7. MIACALCIN [Concomitant]
     Dosage: 200 IU, SAILY

REACTIONS (1)
  - TOOTH DISORDER [None]
